FAERS Safety Report 6511866-3 (Version None)
Quarter: 2009Q4

REPORT INFORMATION
  Report Type: 
  Country: None (occurrence: None)
  Receive Date: 20091222
  Receipt Date: 20091214
  Transmission Date: 20100525
  Serious: Yes (Other)
  Sender: FDA-Public Use
  Company Number: KR-ELI_LILLY_AND_COMPANY-KR200912000015

PATIENT
  Age: 66 Year
  Sex: Male
  Weight: 75 kg

DRUGS (4)
  1. CYMBALTA [Suspect]
     Indication: DIABETIC NEUROPATHY
     Dosage: 30 MG, 2/D
     Route: 065
     Dates: start: 20091110
  2. TALNIFLUMATE [Concomitant]
     Indication: PAIN
     Dosage: UNK, UNKNOWN
     Route: 065
     Dates: start: 20091109
  3. LEVOSULPIRIDE [Concomitant]
     Indication: DYSPEPSIA
     Dosage: UNK, UNKNOWN
     Route: 065
     Dates: start: 20091109
  4. ARTEMISININ [Concomitant]
     Indication: GASTRITIS
     Dosage: UNK, UNKNOWN
     Route: 065
     Dates: start: 20091109

REACTIONS (2)
  - HYPONATRAEMIA [None]
  - LOSS OF CONSCIOUSNESS [None]
